FAERS Safety Report 15670703 (Version 6)
Quarter: 2019Q1

REPORT INFORMATION
  Report Type: Report from Study
  Country: CN (occurrence: CN)
  Receive Date: 20181129
  Receipt Date: 20190220
  Transmission Date: 20190417
  Serious: Yes (Hospitalization)
  Sender: FDA-Public Use
  Company Number: CN-ROCHE-2220251

PATIENT
  Age: 64 Year
  Sex: Female
  Weight: 51 kg

DRUGS (38)
  1. LORATADINE. [Concomitant]
     Active Substance: LORATADINE
     Route: 065
     Dates: start: 20181202, end: 20181202
  2. CIMETIDINE [Concomitant]
     Active Substance: CIMETIDINE
     Route: 065
     Dates: start: 20190119, end: 20190119
  3. PALONOSETRON. [Concomitant]
     Active Substance: PALONOSETRON HYDROCHLORIDE
     Indication: VOMITING
     Route: 065
     Dates: start: 20181110, end: 20181110
  4. GLUTATHIONE REDUCED [Concomitant]
     Route: 065
     Dates: start: 20181202, end: 20181205
  5. GLUTATHIONE REDUCED [Concomitant]
     Route: 065
     Dates: start: 20181228, end: 20181231
  6. FUROSEMIDE. [Concomitant]
     Active Substance: FUROSEMIDE
     Route: 065
     Dates: start: 20181228, end: 20181228
  7. YINHUANG [Concomitant]
     Indication: UPPER RESPIRATORY TRACT INFECTION
     Route: 065
     Dates: start: 20181123, end: 20181202
  8. LORATADINE. [Concomitant]
     Active Substance: LORATADINE
     Route: 065
     Dates: start: 20190119, end: 20190119
  9. CIMETIDINE [Concomitant]
     Active Substance: CIMETIDINE
     Indication: ALLERGY PROPHYLAXIS
     Route: 065
     Dates: start: 20181110, end: 20181110
  10. DEXAMETHASONE SODIUM PHOSPHATE. [Concomitant]
     Active Substance: DEXAMETHASONE SODIUM PHOSPHATE
     Route: 042
     Dates: start: 20181228, end: 20181228
  11. PALONOSETRON. [Concomitant]
     Active Substance: PALONOSETRON HYDROCHLORIDE
     Route: 065
     Dates: start: 20181202, end: 20181202
  12. OMEPRAZOLE SODIUM [Concomitant]
     Active Substance: OMEPRAZOLE SODIUM
     Route: 065
     Dates: start: 20181110, end: 20181113
  13. INSULIN [Concomitant]
     Active Substance: INSULIN NOS
     Indication: HYPERGLYCAEMIA
     Route: 065
     Dates: start: 20181228, end: 20181228
  14. DEXAMETHASONE ACETATE [Concomitant]
     Active Substance: DEXAMETHASONE ACETATE
     Route: 048
     Dates: start: 20181201, end: 20181201
  15. DEXAMETHASONE ACETATE [Concomitant]
     Active Substance: DEXAMETHASONE ACETATE
     Route: 048
     Dates: start: 20181227, end: 20181227
  16. OMEPRAZOLE SODIUM [Concomitant]
     Active Substance: OMEPRAZOLE SODIUM
     Route: 065
     Dates: start: 20181202, end: 20181205
  17. GLUTATHIONE REDUCED [Concomitant]
     Route: 065
     Dates: start: 20181110, end: 20181113
  18. FUROSEMIDE. [Concomitant]
     Active Substance: FUROSEMIDE
     Route: 065
     Dates: start: 20181202, end: 20181203
  19. MUPIROCIN. [Concomitant]
     Active Substance: MUPIROCIN
     Indication: WOUND DEHISCENCE
     Dosage: TREAT THE WOUND BURST
     Route: 065
     Dates: start: 20181112
  20. ATEZOLIZUMAB. [Suspect]
     Active Substance: ATEZOLIZUMAB
     Indication: OVARIAN CANCER
     Dosage: MOST RECENT DOSE OF BLINDED ATEZOLIZUMAB PRIOR TO AE/SAE ONSET ON 10/NOV/2018
     Route: 042
     Dates: start: 20180906
  21. PACLITAXEL. [Suspect]
     Active Substance: PACLITAXEL
     Indication: OVARIAN CANCER
     Dosage: MOST RECENT DOSE OF PACLITAXEL (240 MG) PRIOR TO FIRST EPISODE OF MYELOSUPPRESSION ONSET ON 10/NOV/2
     Route: 042
     Dates: start: 20180906
  22. CARBOPLATIN. [Suspect]
     Active Substance: CARBOPLATIN
     Indication: OVARIAN CANCER
     Dosage: MOST RECENT DOSE OF CARBOPLATIN (660 MG) PRIOR TO FIRST EPISODE OF MYELOSUPPRESSION ONSET ON 10/NOV/
     Route: 042
     Dates: start: 20180906
  23. DEXAMETHASONE SODIUM PHOSPHATE. [Concomitant]
     Active Substance: DEXAMETHASONE SODIUM PHOSPHATE
     Indication: ALLERGY PROPHYLAXIS
     Route: 042
     Dates: start: 20181124, end: 20181124
  24. PALONOSETRON. [Concomitant]
     Active Substance: PALONOSETRON HYDROCHLORIDE
     Route: 065
     Dates: start: 20181228, end: 20181228
  25. HYDROTALCITE [Concomitant]
     Active Substance: HYDROTALCITE
     Route: 065
     Dates: start: 20180929
  26. LORATADINE. [Concomitant]
     Active Substance: LORATADINE
     Route: 065
     Dates: start: 20181228, end: 20181228
  27. DEXAMETHASONE SODIUM PHOSPHATE. [Concomitant]
     Active Substance: DEXAMETHASONE SODIUM PHOSPHATE
     Indication: ERYTHEMA
     Route: 042
     Dates: start: 20181110, end: 20181110
  28. DEXAMETHASONE SODIUM PHOSPHATE. [Concomitant]
     Active Substance: DEXAMETHASONE SODIUM PHOSPHATE
     Route: 042
     Dates: start: 20190127, end: 20190127
  29. GLUTATHIONE REDUCED [Concomitant]
     Route: 065
     Dates: start: 20190118, end: 20190119
  30. FUROSEMIDE. [Concomitant]
     Active Substance: FUROSEMIDE
     Indication: POLYURIA
     Route: 065
     Dates: start: 20181110, end: 20181111
  31. OMEPRAZOLE SODIUM [Concomitant]
     Active Substance: OMEPRAZOLE SODIUM
     Route: 065
     Dates: start: 20181228, end: 20181231
  32. BEVACIZUMAB. [Suspect]
     Active Substance: BEVACIZUMAB
     Indication: OVARIAN CANCER
     Dosage: MOST RECENT DOSE OF BEVACIZUMAB (705 MG) TO FIRST EPISODE OF MYELOSUPPRESSION ONSET ON 10/NOV/2018?M
     Route: 042
     Dates: start: 20180927
  33. MAREN SOFT CAPSULE [Concomitant]
     Route: 065
     Dates: start: 20180930
  34. DEXAMETHASONE ACETATE [Concomitant]
     Active Substance: DEXAMETHASONE ACETATE
     Indication: HYPERSENSITIVITY
     Route: 048
     Dates: start: 20181109, end: 20181109
  35. LORATADINE. [Concomitant]
     Active Substance: LORATADINE
     Indication: ALLERGY PROPHYLAXIS
     Route: 065
     Dates: start: 20181110, end: 20181110
  36. CIMETIDINE [Concomitant]
     Active Substance: CIMETIDINE
     Route: 065
     Dates: start: 20181202, end: 20181202
  37. CIMETIDINE [Concomitant]
     Active Substance: CIMETIDINE
     Route: 065
     Dates: start: 20181228, end: 20181228
  38. DEXAMETHASONE SODIUM PHOSPHATE. [Concomitant]
     Active Substance: DEXAMETHASONE SODIUM PHOSPHATE
     Route: 042
     Dates: start: 20181202, end: 20181202

REACTIONS (1)
  - Bone marrow failure [Recovered/Resolved]

NARRATIVE: CASE EVENT DATE: 20181122
